FAERS Safety Report 12522108 (Version 2)
Quarter: 2016Q4

REPORT INFORMATION
  Report Type: Spontaneous
  Country: US (occurrence: US)
  Receive Date: 20160701
  Receipt Date: 20161109
  Transmission Date: 20170207
  Serious: No
  Sender: FDA-Public Use
  Company Number: US-GLAXOSMITHKLINE-US2016GSK092530

PATIENT
  Age: 44 Year
  Sex: Female

DRUGS (1)
  1. CAMBIA [Suspect]
     Active Substance: DICLOFENAC POTASSIUM
     Indication: MIGRAINE
     Dosage: 50 MG, QD, 1 PACKET MIXED WITH ONE/ TWO OUNCES OF WATER
     Route: 048
     Dates: start: 20160418, end: 20160606

REACTIONS (1)
  - Drug ineffective [Unknown]
